FAERS Safety Report 23823421 (Version 1)
Quarter: 2024Q2

REPORT INFORMATION
  Report Type: Spontaneous
  Country: TR (occurrence: TR)
  Receive Date: 20240507
  Receipt Date: 20240507
  Transmission Date: 20240716
  Serious: Yes (Other)
  Sender: FDA-Public Use
  Company Number: TR-CHEPLA-2024005650

PATIENT
  Age: 57 Year
  Sex: Male

DRUGS (2)
  1. HYDROXYUREA [Suspect]
     Active Substance: HYDROXYUREA
     Indication: Primary myelofibrosis
     Dosage: DAILY DOSE: 500 MILLIGRAM
  2. ASPIRIN [Suspect]
     Active Substance: ASPIRIN
     Indication: Primary myelofibrosis
     Dosage: DAILY DOSE: 100 MILLIGRAM

REACTIONS (1)
  - Polychondritis [Unknown]
